FAERS Safety Report 23003395 (Version 2)
Quarter: 2024Q1

REPORT INFORMATION
  Report Type: Spontaneous
  Country: US (occurrence: US)
  Receive Date: 20230928
  Receipt Date: 20240312
  Transmission Date: 20240410
  Serious: No
  Sender: FDA-Public Use
  Company Number: US-ABBVIE-5423578

PATIENT

DRUGS (1)
  1. LUMIGAN [Suspect]
     Active Substance: BIMATOPROST
     Indication: Product used for unknown indication
     Route: 065

REACTIONS (1)
  - No adverse event [Unknown]
